FAERS Safety Report 8120105-1 (Version None)
Quarter: 2012Q1

REPORT INFORMATION
  Report Type: 
  Country: None (occurrence: None)
  Receive Date: 20120207
  Receipt Date: 20120130
  Transmission Date: 20120608
  Serious: Yes (Hospitalization, Disabling)
  Sender: FDA-Public Use
  Company Number: US-JNJFOC-20111008607

PATIENT
  Sex: Female

DRUGS (5)
  1. ALL OTHER THERAPEUTIC PRODUCTS [Concomitant]
  2. STELARA [Suspect]
     Indication: PSORIASIS
     Route: 058
     Dates: start: 20110623
  3. STELARA [Suspect]
     Route: 058
     Dates: start: 20110721
  4. AQUAPHOR [Concomitant]
  5. SAL-ACID [Concomitant]

REACTIONS (1)
  - PULMONARY FIBROSIS [None]
